FAERS Safety Report 9077644 (Version 1)
Quarter: 2013Q1

REPORT INFORMATION
  Report Type: Spontaneous
  Country: US (occurrence: US)
  Receive Date: 20130130
  Receipt Date: 20130130
  Transmission Date: 20140127
  Serious: No
  Sender: FDA-Public Use
  Company Number: US-ABBOTT-12P-163-0974752-00

PATIENT
  Sex: 0

DRUGS (1)
  1. HUMIRA [Suspect]
     Dates: start: 201010

REACTIONS (4)
  - Vaginal discharge [Recovered/Resolved]
  - Burning sensation [Recovering/Resolving]
  - Rhinitis [Recovered/Resolved]
  - Pain [Unknown]
